FAERS Safety Report 20869863 (Version 1)
Quarter: 2022Q2

REPORT INFORMATION
  Report Type: Spontaneous
  Country: US (occurrence: US)
  Receive Date: 20220525
  Receipt Date: 20220525
  Transmission Date: 20220721
  Serious: No
  Sender: FDA-Public Use
  Company Number: US-SUN PHARMACEUTICAL INDUSTRIES LTD-2021R1-295975

PATIENT
  Sex: Male

DRUGS (1)
  1. BROMFENAC [Suspect]
     Active Substance: BROMFENAC SODIUM
     Indication: Product used for unknown indication
     Dosage: UNK, BID
     Route: 047

REACTIONS (2)
  - Incorrect dose administered [Unknown]
  - Product dispensing error [Unknown]
